FAERS Safety Report 18826084 (Version 2)
Quarter: 2021Q3

REPORT INFORMATION
  Report Type: Spontaneous
  Country: CA (occurrence: CA)
  Receive Date: 20210202
  Receipt Date: 20210716
  Transmission Date: 20211014
  Serious: Yes (Other)
  Sender: FDA-Public Use
  Company Number: CA-PFIZER INC-2021101971

PATIENT
  Age: 51 Year
  Sex: Female

DRUGS (25)
  1. EPIRUBICIN [Suspect]
     Active Substance: EPIRUBICIN
     Indication: BREAST CANCER STAGE III
  2. FLUOROURACIL. [Suspect]
     Active Substance: FLUOROURACIL
     Indication: BREAST CANCER STAGE III
  3. EPIRUBICIN [Suspect]
     Active Substance: EPIRUBICIN
     Indication: PROGESTERONE RECEPTOR ASSAY NEGATIVE
     Dosage: UNK
     Route: 042
  4. PROCYTOX [Suspect]
     Active Substance: CYCLOPHOSPHAMIDE
     Indication: HER2 POSITIVE BREAST CANCER
  5. TRASTUZUMAB. [Suspect]
     Active Substance: TRASTUZUMAB
     Indication: PROGESTERONE RECEPTOR ASSAY NEGATIVE
     Dosage: UNK
     Route: 065
  6. TRASTUZUMAB. [Suspect]
     Active Substance: TRASTUZUMAB
     Indication: OESTROGEN RECEPTOR ASSAY NEGATIVE
  7. TRASTUZUMAB. [Suspect]
     Active Substance: TRASTUZUMAB
     Indication: BREAST CANCER STAGE III
  8. EPIRUBICIN HCL [Suspect]
     Active Substance: EPIRUBICIN HYDROCHLORIDE
     Indication: BREAST CANCER STAGE III
  9. DOCETAXEL. [Suspect]
     Active Substance: DOCETAXEL
     Indication: BREAST CANCER STAGE III
  10. EPIRUBICIN HCL [Suspect]
     Active Substance: EPIRUBICIN HYDROCHLORIDE
     Indication: OESTROGEN RECEPTOR ASSAY NEGATIVE
  11. EPIRUBICIN [Suspect]
     Active Substance: EPIRUBICIN
     Indication: HER2 POSITIVE BREAST CANCER
  12. PROCYTOX [Suspect]
     Active Substance: CYCLOPHOSPHAMIDE
     Indication: PROGESTERONE RECEPTOR ASSAY NEGATIVE
     Dosage: UNK
     Route: 065
  13. FLUOROURACIL. [Suspect]
     Active Substance: FLUOROURACIL
     Indication: PROGESTERONE RECEPTOR ASSAY NEGATIVE
     Dosage: UNK
     Route: 065
  14. EPIRUBICIN HCL [Suspect]
     Active Substance: EPIRUBICIN HYDROCHLORIDE
     Indication: HER2 POSITIVE BREAST CANCER
  15. EPIRUBICIN [Suspect]
     Active Substance: EPIRUBICIN
     Indication: OESTROGEN RECEPTOR ASSAY NEGATIVE
  16. PROCYTOX [Suspect]
     Active Substance: CYCLOPHOSPHAMIDE
     Indication: BREAST CANCER STAGE III
  17. FLUOROURACIL. [Suspect]
     Active Substance: FLUOROURACIL
     Indication: OESTROGEN RECEPTOR ASSAY NEGATIVE
  18. EPIRUBICIN HCL [Suspect]
     Active Substance: EPIRUBICIN HYDROCHLORIDE
     Indication: PROGESTERONE RECEPTOR ASSAY NEGATIVE
     Dosage: UNK
     Route: 065
  19. PROCYTOX [Suspect]
     Active Substance: CYCLOPHOSPHAMIDE
     Indication: OESTROGEN RECEPTOR ASSAY NEGATIVE
  20. ALTACE [Suspect]
     Active Substance: RAMIPRIL
     Indication: CARDIAC FAILURE CONGESTIVE
     Dosage: UNK
     Route: 065
  21. DOCETAXEL. [Suspect]
     Active Substance: DOCETAXEL
     Indication: PROGESTERONE RECEPTOR ASSAY NEGATIVE
     Dosage: UNK
     Route: 065
  22. DOCETAXEL. [Suspect]
     Active Substance: DOCETAXEL
     Indication: OESTROGEN RECEPTOR ASSAY NEGATIVE
  23. TRASTUZUMAB. [Suspect]
     Active Substance: TRASTUZUMAB
     Indication: HER2 POSITIVE BREAST CANCER
  24. FLUOROURACIL. [Suspect]
     Active Substance: FLUOROURACIL
     Indication: HER2 POSITIVE BREAST CANCER
  25. DOCETAXEL. [Suspect]
     Active Substance: DOCETAXEL
     Indication: HER2 POSITIVE BREAST CANCER

REACTIONS (2)
  - Cardiac failure congestive [Unknown]
  - Drug intolerance [Unknown]
